FAERS Safety Report 5224682-X (Version None)
Quarter: 2007Q1

REPORT INFORMATION
  Report Type: 
  Country: None (occurrence: None)
  Receive Date: 20070129
  Receipt Date: 20070129
  Transmission Date: 20070707
  Serious: Yes (Hospitalization)
  Sender: FDA-Public Use
  Company Number: None

PATIENT
  Age: 65 Year
  Sex: Female
  Weight: 100.6985 kg

DRUGS (1)
  1. CLINDAMYCIN [Suspect]
     Indication: ENDODONTIC PROCEDURE
     Dates: start: 20061227, end: 20061230

REACTIONS (5)
  - BLISTER [None]
  - CHILLS [None]
  - DIARRHOEA [None]
  - EXFOLIATIVE RASH [None]
  - PRURITUS [None]
